FAERS Safety Report 8275456-7 (Version None)
Quarter: 2012Q2

REPORT INFORMATION
  Report Type: 
  Country: None (occurrence: None)
  Receive Date: 20120411
  Receipt Date: 20120403
  Transmission Date: 20120825
  Serious: Yes (Hospitalization, Other)
  Sender: FDA-Public Use
  Company Number: SE-BAXTER-2012BH002146

PATIENT
  Sex: Male

DRUGS (3)
  1. KIOVIG [Suspect]
  2. KIOVIG [Suspect]
     Indication: AUTONOMIC NEUROPATHY
     Dosage: 2 GRAMS/KG BODYWEIGHT
     Route: 042
     Dates: start: 20110101, end: 20110916
  3. IMMUNE GLOBULIN INTRAVENOUS (HUMAN) [Suspect]
     Indication: AUTONOMIC NEUROPATHY
     Route: 042
     Dates: start: 20110912, end: 20110916

REACTIONS (1)
  - NEPHROTIC SYNDROME [None]
